FAERS Safety Report 14846233 (Version 1)
Quarter: 2018Q2

REPORT INFORMATION
  Report Type: Report from Study
  Country: GB (occurrence: GB)
  Receive Date: 20180504
  Receipt Date: 20180504
  Transmission Date: 20180711
  Serious: Yes (Other)
  Sender: FDA-Public Use
  Company Number: GB-TEVA-2018-GB-886876

PATIENT
  Age: 55 Year
  Sex: Female

DRUGS (1)
  1. COPAXONE [Suspect]
     Active Substance: GLATIRAMER ACETATE
     Indication: MULTIPLE SCLEROSIS
     Dosage: 40MG/ML
     Route: 058
     Dates: start: 20180410

REACTIONS (10)
  - Feeling cold [Unknown]
  - Contusion [Unknown]
  - Malaise [Unknown]
  - Palpitations [Unknown]
  - Pain [Unknown]
  - Balance disorder [Unknown]
  - Chest discomfort [Unknown]
  - Back pain [Unknown]
  - Confusional state [Unknown]
  - Asthenia [Unknown]

NARRATIVE: CASE EVENT DATE: 201804
